FAERS Safety Report 18944745 (Version 3)
Quarter: 2021Q2

REPORT INFORMATION
  Report Type: Spontaneous
  Country: IT (occurrence: IT)
  Receive Date: 20210226
  Receipt Date: 20210401
  Transmission Date: 20210717
  Serious: Yes (Other)
  Sender: FDA-Public Use
  Company Number: IT-DRREDDYS-USA/ITL/21/0132397

PATIENT
  Sex: Male

DRUGS (3)
  1. EDOXABAN [Interacting]
     Active Substance: EDOXABAN TOSYLATE
     Indication: THROMBOSIS PROPHYLAXIS
     Route: 048
  2. IMATINIB MESYLATE TABLETS [Suspect]
     Active Substance: IMATINIB MESYLATE
     Indication: CHRONIC MYELOID LEUKAEMIA
  3. EDOXABAN [Interacting]
     Active Substance: EDOXABAN TOSYLATE
     Indication: CHRONIC MYELOID LEUKAEMIA

REACTIONS (2)
  - Drug interaction [Unknown]
  - Renal failure [Unknown]
